FAERS Safety Report 8818164 (Version 1)
Quarter: 2012Q4

REPORT INFORMATION
  Report Type: 
  Country: US (occurrence: US)
  Receive Date: 20121001
  Receipt Date: 20121001
  Transmission Date: 20130627
  Serious: Yes (Other)
  Sender: FDA-Public Use
  Company Number: US-BAXTER-2012BAX014845

PATIENT
  Sex: Male

DRUGS (1)
  1. DIANEAL LOW CALCIUM [Suspect]
     Indication: END STAGE RENAL DISEASE (ESRD)
     Route: 033

REACTIONS (4)
  - Pelvic floor muscle weakness [Unknown]
  - Bladder disorder [Unknown]
  - Weight decreased [Unknown]
  - Discomfort [Unknown]
